FAERS Safety Report 16157914 (Version 2)
Quarter: 2019Q2

REPORT INFORMATION
  Report Type: Spontaneous
  Country: FR (occurrence: FR)
  Receive Date: 20190404
  Receipt Date: 20190422
  Transmission Date: 20190711
  Serious: Yes (Hospitalization, Disabling, Other)
  Sender: FDA-Public Use
  Company Number: FR-ABBVIE-19K-056-2731759-00

PATIENT
  Age: 64 Year
  Sex: Female

DRUGS (1)
  1. HUMIRA [Suspect]
     Active Substance: ADALIMUMAB
     Indication: PSORIATIC ARTHROPATHY
     Dosage: 2 X 40 MG
     Route: 058
     Dates: start: 201810, end: 20190311

REACTIONS (6)
  - Blindness unilateral [Unknown]
  - Heart rate increased [Unknown]
  - Optic nerve compression [Unknown]
  - Papilloedema [Unknown]
  - Visual impairment [Not Recovered/Not Resolved]
  - Therapeutic product effect incomplete [Unknown]

NARRATIVE: CASE EVENT DATE: 20190311
